FAERS Safety Report 14561328 (Version 9)
Quarter: 2020Q4

REPORT INFORMATION
  Report Type: Spontaneous
  Country: US (occurrence: US)
  Receive Date: 20180222
  Receipt Date: 20201120
  Transmission Date: 20210113
  Serious: Yes (Other)
  Sender: FDA-Public Use
  Company Number: US-PFIZER INC-2018074488

PATIENT
  Age: 83 Year
  Sex: Female

DRUGS (5)
  1. LYRICA [Suspect]
     Active Substance: PREGABALIN
     Indication: PARAESTHESIA
     Dosage: 50 MG, UNK
  2. LYRICA [Suspect]
     Active Substance: PREGABALIN
     Dosage: 25 MG, 2X/DAY
     Route: 048
  3. LYRICA [Suspect]
     Active Substance: PREGABALIN
     Dosage: 25 MG, AS NEEDED (TAKE 1 CAPSULE(S) TWICE A DAY BY ORAL ROUTE AS NEEDED FOR 90 DAYS )
     Route: 048
  4. LYRICA [Suspect]
     Active Substance: PREGABALIN
     Dosage: 25 MG, AS NEEDED (TAKE 1 CAPSULE(S) 3 TIMES A DAY BY ORAL ROUTE AS NEEDED FOR 90 DAYS)
     Route: 048
  5. LYRICA [Suspect]
     Active Substance: PREGABALIN
     Dosage: 25 MG, 3X/DAY
     Dates: start: 201706

REACTIONS (4)
  - Dementia Alzheimer^s type [Unknown]
  - Fall [Unknown]
  - Arthritis [Unknown]
  - Hypertension [Unknown]
